FAERS Safety Report 14332438 (Version 2)
Quarter: 2018Q1

REPORT INFORMATION
  Report Type: Spontaneous
  Country: FR (occurrence: FR)
  Receive Date: 20171228
  Receipt Date: 20180126
  Transmission Date: 20180509
  Serious: Yes (Life-Threatening)
  Sender: FDA-Public Use
  Company Number: FR-VELOXIS PHARMACEUTICALS-2037895

PATIENT
  Age: 57 Year
  Sex: Female
  Weight: 76 kg

DRUGS (20)
  1. CALCIDOSE VITAMINE D [Concomitant]
     Active Substance: CALCIUM\CHOLECALCIFEROL
  2. ENVARSUS XR [Suspect]
     Active Substance: TACROLIMUS
     Indication: KIDNEY TRANSPLANT REJECTION
     Route: 048
  3. VIALEBEX [Suspect]
     Active Substance: ALBUMIN HUMAN
     Route: 041
     Dates: start: 20171118
  4. VIALEBEX [Suspect]
     Active Substance: ALBUMIN HUMAN
     Route: 041
     Dates: start: 20171124
  5. NOVORAPID [Concomitant]
     Active Substance: INSULIN ASPART
  6. ACEBUTOLOL BASE [Concomitant]
  7. KARDEGIC [Concomitant]
     Active Substance: ASPIRIN DL-LYSINE
  8. MAGNE B6 [Concomitant]
     Active Substance: MAGNESIUM\PYRIDOXINE
  9. MIMPARA [Concomitant]
     Active Substance: CINACALCET HYDROCHLORIDE
  10. CORTANCYL [Suspect]
     Active Substance: PREDNISONE
     Route: 048
     Dates: start: 2017
  11. MYFORTIC [Suspect]
     Active Substance: MYCOPHENOLATE SODIUM
     Route: 048
  12. FENOFIBRATE. [Concomitant]
     Active Substance: FENOFIBRATE
  13. VIALEBEX [Suspect]
     Active Substance: ALBUMIN HUMAN
     Route: 041
     Dates: start: 20171128
  14. AMLOR [Concomitant]
     Active Substance: AMLODIPINE BESYLATE
  15. CORDARONE [Concomitant]
     Active Substance: AMIODARONE HYDROCHLORIDE
  16. LANTUS [Concomitant]
     Active Substance: INSULIN GLARGINE
  17. SERTRALINE [Concomitant]
     Active Substance: SERTRALINE HYDROCHLORIDE
  18. LEVOTHYROXINE SODIUM. [Concomitant]
     Active Substance: LEVOTHYROXINE SODIUM
  19. PANTOPRAZOLE SODIUM. [Concomitant]
     Active Substance: PANTOPRAZOLE SODIUM
  20. WELLVONE [Concomitant]
     Active Substance: ATOVAQUONE

REACTIONS (3)
  - Pneumonia legionella [Recovering/Resolving]
  - Pyelonephritis [Recovering/Resolving]
  - Sepsis [Recovering/Resolving]

NARRATIVE: CASE EVENT DATE: 20171125
